FAERS Safety Report 13619143 (Version 1)
Quarter: 2017Q2

REPORT INFORMATION
  Report Type: Spontaneous
  Country: US (occurrence: US)
  Receive Date: 20170606
  Receipt Date: 20170606
  Transmission Date: 20170830
  Serious: No
  Sender: FDA-Public Use
  Company Number: US-AMGEN-USASP2016122809

PATIENT
  Age: 23 Year
  Sex: Female

DRUGS (2)
  1. PROCRIT [Suspect]
     Active Substance: ERYTHROPOIETIN
     Indication: POSTURAL ORTHOSTATIC TACHYCARDIA SYNDROME
     Dosage: UNK
     Route: 065
  2. PROCRIT [Suspect]
     Active Substance: ERYTHROPOIETIN
     Indication: FATIGUE

REACTIONS (1)
  - Drug dose omission [Unknown]
